FAERS Safety Report 9494416 (Version 1)
Quarter: 2013Q3

REPORT INFORMATION
  Report Type: Spontaneous
  Country: US (occurrence: None)
  Receive Date: 20130830
  Receipt Date: 20130830
  Transmission Date: 20140515
  Serious: Yes (Other)
  Sender: FDA-Public Use
  Company Number: 2013037690

PATIENT
  Sex: Female
  Weight: 66.68 kg

DRUGS (22)
  1. HIZENTRA (IMMUNOGLOBULIN HUMAN NORMAL) [Suspect]
     Indication: IMMUNODEFICIENCY COMMON VARIABLE
     Route: 058
  2. DIPHENHYDRAMINE [Concomitant]
  3. EPIPEN (EPINEPHRINE) [Concomitant]
  4. LMX (LIDOCAINE) [Concomitant]
  5. PROBIOTIC (LACTOBACILLUS ACIDOPHILUS) [Concomitant]
  6. ALENDRONATE (ALENDRONATE SODIUM) [Concomitant]
  7. TYLENOL (PARACETAMOL) [Concomitant]
  8. SIMVASTATIN [Concomitant]
  9. CALCIUM + VITAMIN D (OYSTER SHELL CALCIUM WITH VITAMIN D/01675501/) [Concomitant]
  10. ASPIRIN (ACETYLSALICYLIC ACID) [Concomitant]
  11. GLUCOSAMINE [Concomitant]
  12. HYDROCORTISONE [Concomitant]
  13. VITAMIN B12 (CYANOCOBALAMIN) [Concomitant]
  14. VITAMIN D3 (COLECALCIFEROL) [Concomitant]
  15. DIOVAN (VALSARTAN) [Concomitant]
  16. CENTRUM (CENTRUM /00554501/) [Concomitant]
  17. NIFEDICAL (NIFEDIPINE) [Concomitant]
  18. CYANOCOBALAMIN [Concomitant]
  19. FLECAINIDE [Concomitant]
  20. HYDROCHLOROTHIAZIDE [Concomitant]
  21. PRILOSEC [Concomitant]
  22. ZETIA (EZETIMIBE) [Concomitant]

REACTIONS (1)
  - Staphylococcal skin infection [None]
